FAERS Safety Report 5342560-2 (Version None)
Quarter: 2007Q2

REPORT INFORMATION
  Report Type: 
  Country: None (occurrence: None)
  Receive Date: 20070416
  Receipt Date: 20070228
  Transmission Date: 20071010
  Serious: No
  Sender: FDA-Public Use
  Company Number: 2007SP000732

PATIENT
  Sex: Male

DRUGS (7)
  1. LUNESTA [Suspect]
     Indication: DRUG WITHDRAWAL SYNDROME
     Dosage: SEE IMAGE
     Route: 048
     Dates: start: 20070201, end: 20070101
  2. LUNESTA [Suspect]
     Indication: INSOMNIA
     Dosage: SEE IMAGE
     Route: 048
     Dates: start: 20070201, end: 20070101
  3. LUNESTA [Suspect]
     Indication: DRUG WITHDRAWAL SYNDROME
     Dosage: SEE IMAGE
     Route: 048
     Dates: start: 20070201, end: 20070201
  4. LUNESTA [Suspect]
     Indication: INSOMNIA
     Dosage: SEE IMAGE
     Route: 048
     Dates: start: 20070201, end: 20070201
  5. LUNESTA [Suspect]
     Indication: DRUG WITHDRAWAL SYNDROME
     Dosage: SEE IMAGE
     Route: 048
     Dates: start: 20070101
  6. LUNESTA [Suspect]
     Indication: INSOMNIA
     Dosage: SEE IMAGE
     Route: 048
     Dates: start: 20070101
  7. SUBOXONE [Concomitant]

REACTIONS (1)
  - INSOMNIA [None]
